FAERS Safety Report 11577915 (Version 3)
Quarter: 2016Q1

REPORT INFORMATION
  Report Type: Spontaneous
  Country: US (occurrence: US)
  Receive Date: 20150930
  Receipt Date: 20160127
  Transmission Date: 20160525
  Serious: Yes (Hospitalization, Other)
  Sender: FDA-Public Use
  Company Number: US-BAYER-2015-432548

PATIENT
  Age: 21 Year
  Sex: Female
  Weight: 47.62 kg

DRUGS (6)
  1. PROVERA [Concomitant]
     Active Substance: MEDROXYPROGESTERONE ACETATE
  2. TYLENOL [CHLORPHENAM MAL,DEXTROMET HBR,PARACET,PSEUDOEPH HCL] [Concomitant]
  3. DOXYCYCLINE. [Concomitant]
     Active Substance: DOXYCYCLINE
  4. MIRENA [Suspect]
     Active Substance: LEVONORGESTREL
     Indication: CONTRACEPTION
     Dosage: 20 MCG/24HR, CONT
     Route: 015
     Dates: start: 20080306, end: 20080530
  5. DARVOCET [Concomitant]
     Active Substance: ACETAMINOPHEN\PROPOXYPHENE HYDROCHLORIDE
  6. MEPERGAN [Concomitant]
     Active Substance: MEPERIDINE HYDROCHLORIDE\PROMETHAZINE HYDROCHLORIDE
     Indication: PAIN

REACTIONS (14)
  - Pain [Not Recovered/Not Resolved]
  - Chest pain [None]
  - Abdominal pain [Not Recovered/Not Resolved]
  - Device failure [None]
  - Abdominal discomfort [Not Recovered/Not Resolved]
  - Umbilical hernia [None]
  - Injury [Not Recovered/Not Resolved]
  - Cystitis interstitial [None]
  - Anxiety [None]
  - Uterine perforation [Not Recovered/Not Resolved]
  - Device dislocation [Not Recovered/Not Resolved]
  - Endometritis [None]
  - Stress [None]
  - Emotional distress [None]

NARRATIVE: CASE EVENT DATE: 200805
